FAERS Safety Report 13863763 (Version 1)
Quarter: 2017Q3

REPORT INFORMATION
  Report Type: Spontaneous
  Country: US (occurrence: US)
  Receive Date: 20170814
  Receipt Date: 20170814
  Transmission Date: 20171127
  Serious: Yes (Hospitalization, Other)
  Sender: FDA-Public Use
  Company Number: US-APOTEX-2017AP016680

PATIENT
  Age: 29 Year
  Sex: Male

DRUGS (1)
  1. TRAZODONE HYDROCHLORIDE. [Suspect]
     Active Substance: TRAZODONE HYDROCHLORIDE
     Indication: PRODUCT USED FOR UNKNOWN INDICATION
     Dosage: 25 DF, UNK
     Route: 048

REACTIONS (5)
  - Arteriospasm coronary [Recovered/Resolved]
  - Intentional overdose [Unknown]
  - Acute myocardial infarction [Recovered/Resolved]
  - Suicide attempt [Unknown]
  - Toxicity to various agents [Recovered/Resolved]
